FAERS Safety Report 7198200-3 (Version None)
Quarter: 2010Q4

REPORT INFORMATION
  Report Type: 
  Country: None (occurrence: None)
  Receive Date: 20101209
  Receipt Date: 20101130
  Transmission Date: 20110411
  Serious: Yes (Other)
  Sender: FDA-Public Use
  Company Number: 2010SP062433

PATIENT
  Age: 15 Year
  Sex: Female

DRUGS (2)
  1. AERIUS (DESLORATADINE /01398501/) [Suspect]
     Indication: DISEASE RECURRENCE
     Dosage: 1 DF; QD
     Dates: start: 20100701
  2. AERIUS (DESLORATADINE /01398501/) [Suspect]
     Indication: URTICARIA
     Dosage: 1 DF; QD
     Dates: start: 20100701

REACTIONS (2)
  - DYSKINESIA [None]
  - MUSCLE SPASTICITY [None]
